FAERS Safety Report 5187801-X (Version None)
Quarter: 2006Q4

REPORT INFORMATION
  Report Type: 
  Country: None (occurrence: None)
  Receive Date: 20061221
  Receipt Date: 20061214
  Transmission Date: 20070319
  Serious: Yes (Other)
  Sender: FDA-Public Use
  Company Number: FR-BRISTOL-MYERS SQUIBB COMPANY-13617352

PATIENT

DRUGS (1)
  1. REYATAZ [Suspect]
     Indication: HIV TEST POSITIVE
     Route: 048

REACTIONS (1)
  - ENCEPHALITIS [None]
